FAERS Safety Report 20225854 (Version 1)
Quarter: 2021Q4

REPORT INFORMATION
  Report Type: Spontaneous
  Country: DE (occurrence: DE)
  Receive Date: 20211224
  Receipt Date: 20211224
  Transmission Date: 20220303
  Serious: Yes (Hospitalization)
  Sender: FDA-Public Use
  Company Number: DE-PBPHARMA-211125-01

PATIENT
  Age: 72 Year
  Sex: Female

DRUGS (3)
  1. LANTHANUM CARBONATE [Suspect]
     Active Substance: LANTHANUM CARBONATE
     Indication: Product used for unknown indication
     Dosage: 2000 MILLIGRAM, QD
     Route: 048
     Dates: start: 2007, end: 2013
  2. MYCOPHENOLIC ACID [Concomitant]
     Active Substance: MYCOPHENOLIC ACID
     Indication: Renal and pancreas transplant
     Dosage: 1000 MILLIGRAM, QD
     Route: 065
  3. TACROLIMUS [Concomitant]
     Active Substance: TACROLIMUS
     Indication: Renal and pancreas transplant
     Dosage: 0.5 MILLIGRAM, QD
     Route: 065

REACTIONS (2)
  - Gastric disorder [Unknown]
  - Product residue present [Unknown]
